FAERS Safety Report 5136244-3 (Version None)
Quarter: 2006Q4

REPORT INFORMATION
  Report Type: 
  Country: None (occurrence: None)
  Receive Date: 20061027
  Receipt Date: 20061018
  Transmission Date: 20070319
  Serious: Yes (Hospitalization, Congenital Anomaly)
  Sender: FDA-Public Use
  Company Number: JP-ROCHE-468080

PATIENT
  Age: 1 Hour
  Sex: Female
  Weight: 2.4 kg

DRUGS (1)
  1. RIVOTRIL [Suspect]
     Indication: DRUG USE FOR UNKNOWN INDICATION
     Route: 064

REACTIONS (4)
  - DRUG EXPOSURE DURING PREGNANCY [None]
  - NEONATAL RESPIRATORY ARREST [None]
  - PREGNANCY [None]
  - TRISOMY 21 [None]
